FAERS Safety Report 6497082-2 (Version None)
Quarter: 2009Q4

REPORT INFORMATION
  Report Type: 
  Country: None (occurrence: None)
  Receive Date: 20091215
  Receipt Date: 20090220
  Transmission Date: 20100525
  Serious: No
  Sender: FDA-Public Use
  Company Number: A0770683A

PATIENT

DRUGS (1)
  1. AVODART [Suspect]
     Route: 048

REACTIONS (4)
  - BLOOD FOLLICLE STIMULATING HORMONE INCREASED [None]
  - BLOOD LUTEINISING HORMONE INCREASED [None]
  - BREAST TENDERNESS [None]
  - GENITAL PAIN [None]
